FAERS Safety Report 7304327-5 (Version None)
Quarter: 2011Q1

REPORT INFORMATION
  Report Type: 
  Country: None (occurrence: None)
  Receive Date: 20110221
  Receipt Date: 20110209
  Transmission Date: 20110831
  Serious: Yes (Other)
  Sender: FDA-Public Use
  Company Number: US-ELI_LILLY_AND_COMPANY-US201102002877

PATIENT
  Sex: Male

DRUGS (6)
  1. HUMULIN R [Suspect]
     Dosage: UNK, AS NEEDED
  2. HUMULIN R [Suspect]
     Indication: TYPE 1 DIABETES MELLITUS
     Dosage: 2 U, EACH MORNING
  3. HUMULIN R [Suspect]
     Dosage: 4 U, EACH MORNING
  4. HUMULIN N [Suspect]
     Indication: TYPE 1 DIABETES MELLITUS
     Dosage: 27 U, EACH MORNING
  5. HUMULIN N [Suspect]
     Dosage: 7 U, EACH EVENING
  6. HUMULIN N [Suspect]
     Dosage: 26 U, EACH MORNING

REACTIONS (5)
  - DRUG EFFECT DECREASED [None]
  - INJECTION SITE SWELLING [None]
  - BLOOD GLUCOSE FLUCTUATION [None]
  - BLOOD GLUCOSE INCREASED [None]
  - LOSS OF CONSCIOUSNESS [None]
